FAERS Safety Report 20596483 (Version 1)
Quarter: 2022Q1

REPORT INFORMATION
  Report Type: Spontaneous
  Country: US (occurrence: US)
  Receive Date: 20220315
  Receipt Date: 20220315
  Transmission Date: 20220423
  Serious: No
  Sender: FDA-Public Use
  Company Number: US-PFIZER INC-202200274755

PATIENT
  Age: 76 Year
  Sex: Female
  Weight: 100.7 kg

DRUGS (1)
  1. TOLTERODINE TARTRATE [Suspect]
     Active Substance: TOLTERODINE TARTRATE
     Indication: Urinary incontinence
     Dosage: 4MG ONCE A DAY
     Route: 048

REACTIONS (6)
  - Urinary tract infection [Not Recovered/Not Resolved]
  - Cystitis [Not Recovered/Not Resolved]
  - Thyroid disorder [Unknown]
  - Weight increased [Unknown]
  - Sleep deficit [Unknown]
  - Drug ineffective [Not Recovered/Not Resolved]
